FAERS Safety Report 7536495-4 (Version None)
Quarter: 2011Q2

REPORT INFORMATION
  Report Type: 
  Country: None (occurrence: None)
  Receive Date: 20110524
  Receipt Date: 20110316
  Transmission Date: 20111010
  Serious: Yes (Other)
  Sender: FDA-Public Use
  Company Number: 027429

PATIENT
  Sex: Female
  Weight: 78.4 kg

DRUGS (6)
  1. NORCO [Concomitant]
  2. ZOLPIDEM [Concomitant]
  3. CIMZIA [Suspect]
     Indication: CROHN'S DISEASE
     Dosage: (400 MG 1X/2 WEEKS SUBCUTANEOUS)
     Route: 058
     Dates: start: 20090715
  4. CLONAZEPAM [Concomitant]
  5. CYMBALTA [Concomitant]
  6. ERGOCALCIFEROL [Concomitant]

REACTIONS (7)
  - CROHN'S DISEASE [None]
  - SLEEP DISORDER [None]
  - EAR INFECTION [None]
  - DIARRHOEA [None]
  - ARTHRALGIA [None]
  - VERTIGO [None]
  - FATIGUE [None]
